FAERS Safety Report 8319946-7 (Version None)
Quarter: 2012Q2

REPORT INFORMATION
  Report Type: 
  Country: None (occurrence: None)
  Receive Date: 20120427
  Receipt Date: 20120418
  Transmission Date: 20120825
  Serious: Yes (Other)
  Sender: FDA-Public Use
  Company Number: SE-FRI-1000026059

PATIENT
  Age: 15 Year
  Sex: Female
  Weight: 86 kg

DRUGS (22)
  1. ESCITALOPRAM [Suspect]
     Indication: DEPRESSION
     Dosage: 5 MG
     Route: 048
     Dates: start: 20091101, end: 20110701
  2. METHOTREXATE [Concomitant]
     Dosage: 1.4286 MG
     Route: 048
  3. PROPAVAN [Concomitant]
     Dosage: 1-2 TABLETS
  4. ESCITALOPRAM [Suspect]
     Indication: ANXIETY
     Dosage: 10 MG
     Route: 048
     Dates: start: 20110701, end: 20110801
  5. MELATONIN [Concomitant]
     Dosage: 6 MG
     Route: 048
  6. DIAZEPAM [Concomitant]
  7. CLEMASTINE FUMARATE [Concomitant]
  8. ESCITALOPRAM [Suspect]
     Dosage: 15 MG
     Route: 048
     Dates: start: 20110801
  9. PREDNISOLONE [Concomitant]
     Dosage: 15 MG
     Route: 048
  10. DESLORATADINE [Concomitant]
     Dosage: 10 MG
  11. IMPORTAL [Concomitant]
  12. NEXIUM [Concomitant]
     Dosage: 40 MG
     Route: 048
  13. TRAMADOL HCL [Concomitant]
  14. NIFEREX [Concomitant]
     Dosage: 100 MG
     Route: 048
  15. THERALEN [Concomitant]
     Dosage: 35 MG
     Route: 048
  16. ESCITALOPRAM [Suspect]
     Dosage: 20 MG
     Route: 048
  17. FOLIC ACID [Concomitant]
     Route: 048
  18. SYMBICORT [Concomitant]
  19. PULMOZYME [Concomitant]
     Dosage: 5 ML
  20. KALCIPOS [Concomitant]
  21. PULMICORT [Concomitant]
  22. SINGULAIR [Concomitant]
     Dosage: 5 MG

REACTIONS (8)
  - NASAL CONGESTION [None]
  - WEIGHT INCREASED [None]
  - ANAL HAEMORRHAGE [None]
  - EPISTAXIS [None]
  - PRURITUS [None]
  - OFF LABEL USE [None]
  - RASH [None]
  - SCAB [None]
